FAERS Safety Report 4871373-0 (Version None)
Quarter: 2006Q1

REPORT INFORMATION
  Report Type: 
  Country: None (occurrence: None)
  Receive Date: 20060103
  Receipt Date: 20051227
  Transmission Date: 20060701
  Serious: Yes (Death, Other)
  Sender: FDA-Public Use
  Company Number: DE-MERCK-0512DEU00138

PATIENT
  Age: 77 Year
  Sex: Male

DRUGS (5)
  1. STROMECTOL [Suspect]
     Indication: STRONGYLOIDIASIS
     Route: 061
     Dates: start: 20040701, end: 20040701
  2. IVOMEC [Suspect]
     Indication: STRONGYLOIDIASIS
     Route: 058
     Dates: start: 20040701, end: 20040701
  3. PREDNISOLONE [Concomitant]
     Route: 048
     Dates: start: 20040401
  4. CYCLOPHOSPHAMIDE [Concomitant]
     Route: 065
     Dates: start: 20040401, end: 20040401
  5. CYCLOPHOSPHAMIDE [Concomitant]
     Route: 065
     Dates: start: 20040601, end: 20040601

REACTIONS (7)
  - ACUTE RESPIRATORY DISTRESS SYNDROME [None]
  - BLOOD ALKALINE PHOSPHATASE INCREASED [None]
  - GAMMA-GLUTAMYLTRANSFERASE INCREASED [None]
  - OFF LABEL USE [None]
  - PNEUMONITIS [None]
  - THROMBOCYTOPENIA [None]
  - TRANSAMINASES INCREASED [None]
